FAERS Safety Report 9384840 (Version 1)
Quarter: 2013Q3

REPORT INFORMATION
  Report Type: Spontaneous
  Country: CZ (occurrence: CZ)
  Receive Date: 20130705
  Receipt Date: 20130705
  Transmission Date: 20140515
  Serious: Yes (Hospitalization)
  Sender: FDA-Public Use
  Company Number: CZ-BAYER-2013-078847

PATIENT
  Age: 60 Year
  Sex: Female

DRUGS (22)
  1. ASPIRIN PROTECT 100 [Suspect]
     Indication: PRODUCT USED FOR UNKNOWN INDICATION
     Dosage: UNK
  2. ANOPYRIN [Suspect]
     Indication: PRODUCT USED FOR UNKNOWN INDICATION
     Dosage: UNK UNK, QD
     Dates: start: 20101112, end: 20120514
  3. ANOPYRIN [Suspect]
     Indication: PRODUCT USED FOR UNKNOWN INDICATION
     Dosage: 100 MG, QD
     Dates: start: 20120523
  4. CLOPIDOGREL [Concomitant]
     Indication: PRODUCT USED FOR UNKNOWN INDICATION
     Dosage: 75 MG, QD
     Dates: start: 20101112, end: 20101112
  5. RAMIPRIL [Concomitant]
     Indication: PRODUCT USED FOR UNKNOWN INDICATION
     Dosage: 10 MG, QD
     Dates: start: 20101112
  6. ATORVASTATIN [Concomitant]
     Indication: PRODUCT USED FOR UNKNOWN INDICATION
     Dosage: 20 MG, QD
     Dates: start: 20101112, end: 20111207
  7. ATORVASTATIN [Concomitant]
     Indication: PRODUCT USED FOR UNKNOWN INDICATION
     Dosage: 40 MG, QD
     Dates: start: 20111208
  8. PANTOPRAZOLE [Concomitant]
     Indication: PRODUCT USED FOR UNKNOWN INDICATION
     Dosage: UNK
     Dates: start: 20101112, end: 20120416
  9. HUMULIN N [INSULIN HUMAN] [Concomitant]
     Indication: PRODUCT USED FOR UNKNOWN INDICATION
     Dosage: 22 IU/ML (1 IN 1 D)
     Dates: start: 2007, end: 20110104
  10. HUMULIN N [INSULIN HUMAN] [Concomitant]
     Indication: PRODUCT USED FOR UNKNOWN INDICATION
     Dosage: 16 IU/ML (1 IN 1 D)
     Dates: start: 20110105, end: 201204
  11. HUMULIN R [Concomitant]
     Indication: PRODUCT USED FOR UNKNOWN INDICATION
     Dosage: 10 IU/ML (3 IN 1 D)
     Dates: start: 2007, end: 201204
  12. NOVORAPID [Concomitant]
     Indication: PRODUCT USED FOR UNKNOWN INDICATION
     Dosage: 18 IU/ML (2 IN 1 D)
     Dates: start: 20120426
  13. NOVORAPID [Concomitant]
     Indication: PRODUCT USED FOR UNKNOWN INDICATION
     Dosage: 14 IU/ML (1 IN 1 D)
     Dates: start: 201204, end: 20120813
  14. NOVORAPID [Concomitant]
     Indication: PRODUCT USED FOR UNKNOWN INDICATION
     Dosage: 12 IU/ML (1 IN 1 D)
     Dates: start: 20120814
  15. NOVORAPID [Concomitant]
     Indication: PRODUCT USED FOR UNKNOWN INDICATION
     Dosage: 8 IU/ML (2 IN 1 D)
     Dates: start: 20120426
  16. AGEN [Concomitant]
     Indication: PRODUCT USED FOR UNKNOWN INDICATION
     Dosage: 10 MG, QD
     Dates: start: 20120523, end: 20121015
  17. WARFARIN [Concomitant]
     Dosage: 5 MG, QD
     Dates: start: 20120519, end: 20121015
  18. AMLODIPINE [Concomitant]
     Dosage: 10 MG, QD
     Dates: start: 20121121
  19. GANATON [Concomitant]
     Dosage: UNK UNK, TID
     Dates: start: 20120427, end: 20121015
  20. LEVEMIR [Concomitant]
     Dosage: 20 IU/ML (1 IN 1 D)
     Dates: start: 201204
  21. PANTOPRAZOLE [Concomitant]
     Dosage: 40 MG, BID
     Dates: start: 20120427
  22. POTASSIUM CHLORIDE [Concomitant]
     Dosage: UNK
     Dates: start: 20130417

REACTIONS (7)
  - Gastrooesophageal reflux disease [Recovered/Resolved]
  - Dyspepsia [Recovered/Resolved]
  - Pulmonary embolism [Recovered/Resolved]
  - Cardiac failure congestive [Recovered/Resolved]
  - Dyspnoea exertional [Recovered/Resolved]
  - Oedema [Recovered/Resolved]
  - Dyspepsia [Recovered/Resolved]
